FAERS Safety Report 6578284-3 (Version None)
Quarter: 2010Q1

REPORT INFORMATION
  Report Type: 
  Country: None (occurrence: None)
  Receive Date: 20100211
  Receipt Date: 20100204
  Transmission Date: 20100710
  Serious: Yes (Hospitalization)
  Sender: FDA-Public Use
  Company Number: B0631336A

PATIENT
  Age: 85 Year
  Sex: Male

DRUGS (3)
  1. VALTREX [Suspect]
     Indication: HERPES ZOSTER
     Dosage: 1000MG THREE TIMES PER DAY
     Route: 048
     Dates: start: 20100105, end: 20100131
  2. MEFENAMIC ACID [Concomitant]
     Indication: ANALGESIC THERAPY
     Dosage: 2250MG PER DAY
     Route: 048
     Dates: start: 20100105, end: 20100131
  3. PLAVIX [Concomitant]
     Route: 048

REACTIONS (3)
  - ALTERED STATE OF CONSCIOUSNESS [None]
  - OVERDOSE [None]
  - RENAL FAILURE ACUTE [None]
